FAERS Safety Report 8213044-9 (Version None)
Quarter: 2012Q1

REPORT INFORMATION
  Report Type: 
  Country: None (occurrence: None)
  Receive Date: 20120315
  Receipt Date: 20120314
  Transmission Date: 20120608
  Serious: Yes (Other)
  Sender: FDA-Public Use
  Company Number: JP-PFIZER INC-2012060233

PATIENT
  Sex: Female

DRUGS (2)
  1. ABILIFY [Concomitant]
     Dosage: UNK
     Route: 048
  2. ZOLOFT [Suspect]
     Dosage: UNK
     Route: 048

REACTIONS (1)
  - PARKINSONISM [None]
